FAERS Safety Report 5605548-X (Version None)
Quarter: 2008Q1

REPORT INFORMATION
  Report Type: 
  Country: None (occurrence: None)
  Receive Date: 20080125
  Receipt Date: 20080125
  Transmission Date: 20080703
  Serious: Yes (Other)
  Sender: FDA-Public Use
  Company Number: None

PATIENT
  Age: 50 Year
  Sex: Male
  Weight: 87.9978 kg

DRUGS (3)
  1. MIRTAZAPINE [Suspect]
     Indication: AFFECTIVE DISORDER
     Dosage: 15MG QHS
     Dates: start: 20071223, end: 20071225
  2. THIAMINE [Concomitant]
  3. NICOTINE [Concomitant]

REACTIONS (2)
  - PAIN IN EXTREMITY [None]
  - RASH [None]
